FAERS Safety Report 7657457-2 (Version None)
Quarter: 2011Q3

REPORT INFORMATION
  Report Type: 
  Country: None (occurrence: None)
  Receive Date: 20110804
  Receipt Date: 20110726
  Transmission Date: 20111222
  Serious: Yes (Disabling)
  Sender: FDA-Public Use
  Company Number: FR-ASTRAZENECA-2011SE45324

PATIENT
  Age: 625 Month
  Sex: Male

DRUGS (4)
  1. VENLAFAXINE [Suspect]
     Indication: STRESS
     Dosage: 37.5 EXTENDED RELEASE , DAILY
     Route: 048
     Dates: start: 20101122, end: 20110206
  2. CRESTOR [Suspect]
     Route: 048
     Dates: start: 20110208, end: 20110328
  3. VARENICLINE TARTRATE [Concomitant]
     Indication: SMOKING CESSATION THERAPY
     Route: 048
     Dates: start: 20100716, end: 20101001
  4. CRESTOR [Suspect]
     Indication: HYPERCHOLESTEROLAEMIA
     Route: 048
     Dates: start: 20101122, end: 20110124

REACTIONS (5)
  - FATIGUE [None]
  - MYALGIA [None]
  - EXERCISE LACK OF [None]
  - HEADACHE [None]
  - NAUSEA [None]
